FAERS Safety Report 18415854 (Version 4)
Quarter: 2020Q4

REPORT INFORMATION
  Report Type: Spontaneous
  Country: HU (occurrence: HU)
  Receive Date: 20201022
  Receipt Date: 20201210
  Transmission Date: 20210114
  Serious: Yes (Death, Life-Threatening, Hospitalization, Other)
  Sender: FDA-Public Use
  Company Number: NVSC2020HU283045

PATIENT
  Age: 78 Year
  Sex: Male

DRUGS (32)
  1. AMOXICILLIN TRIHYDRATE [Suspect]
     Active Substance: AMOXICILLIN
     Indication: INFLAMMATION
     Dosage: 1.2 G, TID
     Route: 042
  2. CLAVULANIC ACID [Suspect]
     Active Substance: CLAVULANIC ACID
     Indication: PROPHYLAXIS
     Dosage: 3.6 G, QD 91.2 G, TID)
     Route: 042
  3. ZAVICEFTA [Suspect]
     Active Substance: AVIBACTAM SODIUM\CEFTAZIDIME
     Indication: SEPSIS
  4. METRONIDAZOLE. [Suspect]
     Active Substance: METRONIDAZOLE
     Indication: PROPHYLAXIS
     Dosage: 300 ML, QD (100 ML, TID)
     Route: 042
  5. CEFTAZIDIME. [Suspect]
     Active Substance: CEFTAZIDIME
     Indication: PSEUDOMONAS INFECTION
     Dosage: 2 G, TID
     Route: 042
  6. CEFTAZIDIME. [Suspect]
     Active Substance: CEFTAZIDIME
     Indication: ENTEROBACTER INFECTION
  7. FOSFOMYCIN [Suspect]
     Active Substance: FOSFOMYCIN
     Indication: PNEUMONIA KLEBSIELLA
     Dosage: 3 G, QD
     Route: 048
  8. TAZOBACTAM SODIUM [Suspect]
     Active Substance: TAZOBACTAM SODIUM
     Indication: PRODUCT USED FOR UNKNOWN INDICATION
     Dosage: UNK (TAKEN FOR 6 DAYS)
     Route: 065
  9. CEFUROXIME SODIUM. [Suspect]
     Active Substance: CEFUROXIME SODIUM
     Indication: INFLAMMATION
  10. BETADINE [Concomitant]
     Active Substance: POVIDONE-IODINE
     Indication: PRODUCT USED FOR UNKNOWN INDICATION
     Dosage: UNK
     Route: 065
  11. GENTAMCIN [Suspect]
     Active Substance: GENTAMICIN
     Indication: PSEUDOMONAS INFECTION
  12. AMOXICILLIN TRIHYDRATE [Suspect]
     Active Substance: AMOXICILLIN
     Indication: PROPHYLAXIS
  13. METRONIDAZOLE. [Suspect]
     Active Substance: METRONIDAZOLE
     Indication: INFLAMMATION
  14. GENTAMCIN [Suspect]
     Active Substance: GENTAMICIN
     Indication: ENTEROBACTER INFECTION
  15. VANCOMYCIN [Suspect]
     Active Substance: VANCOMYCIN
     Indication: CLOSTRIDIUM DIFFICILE INFECTION
     Dosage: 125 MG, QID
     Route: 048
  16. PIPERACILLIN SODIUM [Suspect]
     Active Substance: PIPERACILLIN SODIUM
     Indication: ANTIBIOTIC THERAPY
     Dosage: 4.5 G, QID
     Route: 042
  17. ZAVICEFTA [Suspect]
     Active Substance: AVIBACTAM SODIUM\CEFTAZIDIME
     Indication: ABDOMINAL INFECTION
  18. ASCORBIC ACID. [Concomitant]
     Active Substance: ASCORBIC ACID
     Indication: PRODUCT USED FOR UNKNOWN INDICATION
     Dosage: UNK
     Route: 065
  19. MEROPENEM. [Suspect]
     Active Substance: MEROPENEM
     Indication: PNEUMONIA KLEBSIELLA
     Dosage: 1 G, BID
     Route: 042
  20. CEFTAZIDIME. [Suspect]
     Active Substance: CEFTAZIDIME
     Indication: ENTEROBACTER INFECTION
  21. AVIBACTAM SODIUM. [Suspect]
     Active Substance: AVIBACTAM SODIUM
     Indication: PNEUMONIA KLEBSIELLA
     Dosage: 2.5 MG
     Route: 042
     Dates: start: 20180707, end: 20180713
  22. CLAVULANIC ACID [Suspect]
     Active Substance: CLAVULANIC ACID
     Indication: INFLAMMATION
  23. PIPERACILLIN AND TAZOBACTAM [Suspect]
     Active Substance: PIPERACILLIN SODIUM\TAZOBACTAM SODIUM
     Indication: ANTIBIOTIC THERAPY
     Dosage: 4.5 G, QID
     Route: 042
  24. ZAVICEFTA [Suspect]
     Active Substance: AVIBACTAM SODIUM\CEFTAZIDIME
     Indication: PNEUMONIA KLEBSIELLA
     Dosage: 2.5 G, TID
     Route: 042
  25. IMIPENEM [Suspect]
     Active Substance: IMIPENEM
     Indication: ENTEROCOCCAL INFECTION
     Dosage: 500 MG, QID
     Route: 042
  26. FIDAXOMICIN [Suspect]
     Active Substance: FIDAXOMICIN
     Indication: CLOSTRIDIUM DIFFICILE INFECTION
     Dosage: 200 MG, BID
     Route: 065
  27. METHENAMINE [Concomitant]
     Active Substance: METHENAMINE
     Indication: PRODUCT USED FOR UNKNOWN INDICATION
     Dosage: UNK
     Route: 065
  28. METRONIDAZOLE. [Suspect]
     Active Substance: METRONIDAZOLE
     Indication: CLOSTRIDIUM DIFFICILE INFECTION
  29. GENTAMCIN [Suspect]
     Active Substance: GENTAMICIN
     Indication: ENTEROBACTER INFECTION
     Dosage: 160 MG, QD
     Route: 042
  30. SULFAMETHOXAZOLE AND TRIMETHOPRIM [Suspect]
     Active Substance: SULFAMETHOXAZOLE\TRIMETHOPRIM
     Indication: CITROBACTER INFECTION
     Dosage: 400/80 MG BID
     Route: 048
  31. IMIPENEM [Suspect]
     Active Substance: IMIPENEM
     Indication: RENAL IMPAIRMENT
     Dosage: 500 MG, BID
     Route: 042
  32. CEFUROXIME SODIUM. [Suspect]
     Active Substance: CEFUROXIME SODIUM
     Indication: ENTEROBACTER INFECTION
     Dosage: 1.5 G, TID
     Route: 042

REACTIONS (17)
  - Anaemia [Unknown]
  - Diarrhoea [Unknown]
  - Pathogen resistance [Fatal]
  - Chest pain [Unknown]
  - Pyrexia [Unknown]
  - Drug resistance [Unknown]
  - Gastroenteritis [Unknown]
  - Malaise [Unknown]
  - Hypoxia [Unknown]
  - Dyspnoea [Unknown]
  - Septic shock [Fatal]
  - Chills [Unknown]
  - Sepsis [Fatal]
  - Respiratory failure [Unknown]
  - Product use in unapproved indication [Unknown]
  - Melaena [Unknown]
  - Clostridium difficile infection [Not Recovered/Not Resolved]
